FAERS Safety Report 18228810 (Version 1)
Quarter: 2020Q3

REPORT INFORMATION
  Report Type: Report from Study
  Country: US (occurrence: US)
  Receive Date: 20200903
  Receipt Date: 20200903
  Transmission Date: 20201103
  Serious: Yes (Life-Threatening, Hospitalization, Disabling, Other)
  Sender: FDA-Public Use
  Company Number: US-PFIZER INC-2020337542

PATIENT
  Age: 60 Year
  Sex: Male

DRUGS (4)
  1. CALCIUM FOLINATE [Suspect]
     Active Substance: LEUCOVORIN CALCIUM
     Indication: COLORECTAL CANCER METASTATIC
     Dosage: 772 MG FORTNIGHTY (EVERY 2 WEEKS)
     Route: 042
     Dates: start: 20171113
  2. 5?FLUOROURACIL [FLUOROURACIL] [Suspect]
     Active Substance: FLUOROURACIL
     Indication: COLORECTAL CANCER METASTATIC
     Dosage: 770 MG FORTNIGHTY (EVERY TWO WEEKS)
     Route: 040
     Dates: start: 20171113, end: 20180108
  3. IRINOTECAN HCL [Suspect]
     Active Substance: IRINOTECAN HYDROCHLORIDE
     Indication: COLORECTAL CANCER METASTATIC
     Dosage: 280 MG FORTNIGHTY (EVERY TWO WEEKS)
     Route: 042
     Dates: start: 20171113
  4. 5?FLUOROURACIL [FLUOROURACIL] [Suspect]
     Active Substance: FLUOROURACIL
     Dosage: 4630 MG FORTNIGHTY (EVERY TWO WEEKS)
     Route: 042
     Dates: start: 20171113

REACTIONS (3)
  - Sepsis [Recovered/Resolved]
  - Pyrexia [Recovered/Resolved]
  - Dehydration [Recovered/Resolved]

NARRATIVE: CASE EVENT DATE: 20180709
